FAERS Safety Report 9623089 (Version 2)
Quarter: 2013Q4

REPORT INFORMATION
  Report Type: Spontaneous
  Country: US (occurrence: US)
  Receive Date: 20131015
  Receipt Date: 20131015
  Transmission Date: 20140711
  Serious: No
  Sender: FDA-Public Use
  Company Number: US-PURDUE-USA-2012-0087422

PATIENT
  Age: 68 Year
  Sex: Female

DRUGS (3)
  1. BUTRANS [Suspect]
     Indication: PAIN
     Dosage: 10 MCG/HR, UNK
     Route: 062
     Dates: start: 20120506
  2. BUTRANS [Suspect]
     Dosage: 5 MCG/HR, UNK
     Route: 062
     Dates: start: 20120406
  3. OXYCODONE HCL LIQUID [Concomitant]
     Indication: BREAKTHROUGH PAIN
     Dosage: 10-15 MG DAILY

REACTIONS (17)
  - Drug withdrawal syndrome [Unknown]
  - Sinusitis [Unknown]
  - Headache [Unknown]
  - Nausea [Recovered/Resolved]
  - Vomiting [Recovered/Resolved]
  - Application site pruritus [Not Recovered/Not Resolved]
  - Application site inflammation [Not Recovered/Not Resolved]
  - Application site erythema [Not Recovered/Not Resolved]
  - Fatigue [Recovered/Resolved]
  - Pyrexia [Unknown]
  - Chills [Unknown]
  - Inadequate analgesia [Unknown]
  - Malaise [Unknown]
  - Chest discomfort [Unknown]
  - Pain [Unknown]
  - Somnolence [Unknown]
  - Drug ineffective [Unknown]
